FAERS Safety Report 17610346 (Version 1)
Quarter: 2020Q2

REPORT INFORMATION
  Report Type: Spontaneous
  Country: US (occurrence: US)
  Receive Date: 20200401
  Receipt Date: 20200401
  Transmission Date: 20200713
  Serious: Yes (Other)
  Sender: FDA-Public Use
  Company Number: None

PATIENT
  Age: 16 Year
  Sex: Female
  Weight: 63 kg

DRUGS (3)
  1. CLINDAMYCIN PHOSPHATE GELUSP, 1% [Suspect]
     Active Substance: CLINDAMYCIN PHOSPHATE
     Indication: ACNE
     Dosage: ?          QUANTITY:1 APPLY;?
     Route: 061
     Dates: start: 20200328, end: 20200329
  2. BIRTH CONTROL SYNTHROID [Concomitant]
  3. AKLIEF [Suspect]
     Active Substance: TRIFAROTENE
     Indication: ACNE
     Dosage: ?          QUANTITY:1 APPLY;?
     Route: 061
     Dates: start: 20200329, end: 20200329

REACTIONS (2)
  - Skin burning sensation [None]
  - Erythema [None]

NARRATIVE: CASE EVENT DATE: 20200330
